FAERS Safety Report 20033627 (Version 1)
Quarter: 2021Q4

REPORT INFORMATION
  Report Type: Report from Study
  Country: US (occurrence: US)
  Receive Date: 20211104
  Receipt Date: 20211104
  Transmission Date: 20220303
  Serious: Yes (Death, Other)
  Sender: FDA-Public Use
  Company Number: US-MYLANLABS-2021M1079980

PATIENT
  Age: 51 Year
  Sex: Female

DRUGS (2)
  1. FULPHILA [Suspect]
     Active Substance: PEGFILGRASTIM-JMDB
     Indication: Agranulocytosis
     Dosage: UNK
  2. FULPHILA [Suspect]
     Active Substance: PEGFILGRASTIM-JMDB
     Indication: Hepatobiliary cancer

REACTIONS (1)
  - Death [Fatal]

NARRATIVE: CASE EVENT DATE: 20210724
